FAERS Safety Report 12386121 (Version 2)
Quarter: 2016Q2

REPORT INFORMATION
  Report Type: Spontaneous
  Country: FR (occurrence: DE)
  Receive Date: 20160519
  Receipt Date: 20160603
  Transmission Date: 20160815
  Serious: Yes (Other)
  Sender: FDA-Public Use
  Company Number: DE-ASCEND THERAPEUTICS-1052477

PATIENT
  Age: 49 Year
  Sex: Female

DRUGS (2)
  1. PROGESTERONE. [Concomitant]
     Active Substance: PROGESTERONE
     Route: 067
     Dates: start: 20070101, end: 20151009
  2. ESTROGEL [Suspect]
     Active Substance: ESTRADIOL
     Indication: MENOPAUSAL SYMPTOMS
     Route: 062
     Dates: start: 20070101, end: 20151009

REACTIONS (2)
  - Product use issue [Unknown]
  - Breast cancer [Unknown]

NARRATIVE: CASE EVENT DATE: 20070101
